FAERS Safety Report 18972159 (Version 1)
Quarter: 2021Q1

REPORT INFORMATION
  Report Type: Spontaneous
  Country: US (occurrence: US)
  Receive Date: 20210303
  Receipt Date: 20210303
  Transmission Date: 20210420
  Serious: Yes (Death)
  Sender: FDA-Public Use
  Company Number: None

PATIENT
  Age: 85 Year
  Sex: Female
  Weight: 45.81 kg

DRUGS (1)
  1. IVERMECTIN. [Suspect]
     Active Substance: IVERMECTIN
     Dosage: 15MG  A48 X4 ORAL
     Route: 048
     Dates: start: 20201221, end: 20201227

REACTIONS (2)
  - Death [None]
  - COVID-19 [None]

NARRATIVE: CASE EVENT DATE: 20201222
